FAERS Safety Report 12531075 (Version 1)
Quarter: 2016Q3

REPORT INFORMATION
  Report Type: Spontaneous
  Country: US (occurrence: None)
  Receive Date: 20160705
  Receipt Date: 20160705
  Transmission Date: 20161109
  Serious: Yes (Life-Threatening)
  Sender: FDA-Public Use
  Company Number: None

PATIENT
  Age: 51 Year
  Sex: Female

DRUGS (5)
  1. MONTELUKAST [Concomitant]
     Active Substance: MONTELUKAST SODIUM
  2. AMPHETAMINE/DEXTIA [Concomitant]
  3. TOPIRAMATE. [Concomitant]
     Active Substance: TOPIRAMATE
  4. XOLAIR [Suspect]
     Active Substance: OMALIZUMAB
     Indication: IDIOPATHIC URTICARIA
     Dosage: 2 VIALS Q4WKS SQ
     Route: 058
     Dates: start: 201606, end: 201606
  5. VENLAFAXINE [Concomitant]
     Active Substance: VENLAFAXINE HYDROCHLORIDE

REACTIONS (7)
  - Pain [None]
  - Throat tightness [None]
  - Dizziness [None]
  - Urticaria [None]
  - Head discomfort [None]
  - Dysphagia [None]
  - Pyrexia [None]

NARRATIVE: CASE EVENT DATE: 201606
